FAERS Safety Report 22033385 (Version 1)
Quarter: 2023Q1

REPORT INFORMATION
  Report Type: Report from Study
  Country: US (occurrence: US)
  Receive Date: 20230224
  Receipt Date: 20230224
  Transmission Date: 20230418
  Serious: Yes (Hospitalization, Other)
  Sender: FDA-Public Use
  Company Number: US-KOREA IPSEN Pharma-2022-31894

PATIENT
  Age: 62 Year
  Sex: Male

DRUGS (3)
  1. SOMATULINE DEPOT [Suspect]
     Active Substance: LANREOTIDE ACETATE
     Indication: Carcinoid tumour pulmonary
     Dosage: 120 MG/0.5 ML
     Route: 058
     Dates: start: 202101
  2. CAPECITABINE [Concomitant]
     Active Substance: CAPECITABINE
  3. TEMODAR [Concomitant]
     Active Substance: TEMOZOLOMIDE

REACTIONS (4)
  - Hospitalisation [Recovered/Resolved]
  - Neoplasm progression [Recovering/Resolving]
  - Injection site pain [Recovered/Resolved]
  - Off label use [Recovered/Resolved]

NARRATIVE: CASE EVENT DATE: 20221101
